FAERS Safety Report 9844553 (Version 1)
Quarter: 2014Q1

REPORT INFORMATION
  Report Type: Spontaneous
  Country: US (occurrence: None)
  Receive Date: 20140123
  Receipt Date: 20140123
  Transmission Date: 20141002
  Serious: Yes (Hospitalization, Disabling, Other)
  Sender: FDA-Public Use
  Company Number: None

PATIENT
  Age: 26 Year
  Sex: Female
  Weight: 86.18 kg

DRUGS (1)
  1. ORTHOTRICYCLEN [Suspect]
     Dosage: 1 PILL A DAY  ONCE DAILY  TAKEN BY MOUTH
     Route: 048
     Dates: start: 2009, end: 2013

REACTIONS (1)
  - Deep vein thrombosis [None]
